FAERS Safety Report 20560574 (Version 2)
Quarter: 2022Q1

REPORT INFORMATION
  Report Type: Report from Study
  Country: DE (occurrence: DE)
  Receive Date: 20220307
  Receipt Date: 20220322
  Transmission Date: 20220423
  Serious: Yes (Death, Hospitalization)
  Sender: FDA-Public Use
  Company Number: DE-BAYER-2022A030691

PATIENT
  Age: 85 Year
  Sex: Male

DRUGS (1)
  1. KOVALTRY [Suspect]
     Active Substance: ANTIHEMOPHILIC FACTOR, HUMAN RECOMBINANT
     Indication: Factor VIII deficiency
     Dosage: 1000 IU INJECTION
     Dates: start: 20201204, end: 20220224

REACTIONS (1)
  - Oedema peripheral [Fatal]

NARRATIVE: CASE EVENT DATE: 20220225
